FAERS Safety Report 24319238 (Version 1)
Quarter: 2024Q3

REPORT INFORMATION
  Report Type: Report from Study
  Country: US (occurrence: US)
  Receive Date: 20240913
  Receipt Date: 20240913
  Transmission Date: 20241016
  Serious: Yes (Other)
  Sender: ABBVIE
  Company Number: US-ABBVIE-5919813

PATIENT
  Sex: Male

DRUGS (1)
  1. CREON [Suspect]
     Active Substance: PANCRELIPASE AMYLASE\PANCRELIPASE LIPASE\PANCRELIPASE PROTEASE
     Indication: Product used for unknown indication
     Route: 048
     Dates: start: 20210901

REACTIONS (5)
  - Gastrointestinal neoplasm [Not Recovered/Not Resolved]
  - Throat clearing [Not Recovered/Not Resolved]
  - Precancerous lesion of digestive tract [Not Recovered/Not Resolved]
  - Pancreatitis [Unknown]
  - Gastrointestinal polyp [Unknown]
